FAERS Safety Report 10811286 (Version 1)
Quarter: 2015Q1

REPORT INFORMATION
  Report Type: Spontaneous
  Country: US (occurrence: None)
  Receive Date: 20150212
  Receipt Date: 20150212
  Transmission Date: 20150721
  Serious: Yes (Disabling)
  Sender: FDA-Public Use
  Company Number: None

PATIENT
  Age: 35 Year
  Sex: Male
  Weight: 83.92 kg

DRUGS (1)
  1. JOINTFLEX [Suspect]
     Active Substance: CAMPHOR (SYNTHETIC)
     Indication: ARTHRALGIA
     Dates: start: 20150120, end: 20150120

REACTIONS (9)
  - Dyspnoea [None]
  - Incision site inflammation [None]
  - Burns second degree [None]
  - Application site burn [None]
  - Dizziness [None]
  - Wound dehiscence [None]
  - Incision site swelling [None]
  - Hyperhidrosis [None]
  - Burns first degree [None]

NARRATIVE: CASE EVENT DATE: 20150120
